FAERS Safety Report 11200560 (Version 1)
Quarter: 2015Q2

REPORT INFORMATION
  Report Type: Report from Study
  Country: MX (occurrence: MX)
  Receive Date: 20150618
  Receipt Date: 20150618
  Transmission Date: 20150821
  Serious: Yes (Other)
  Sender: FDA-Public Use
  Company Number: MX-BRISTOL-MYERS SQUIBB COMPANY-BMS-2015-038307

PATIENT
  Age: 25 Year
  Sex: Female
  Weight: 41 kg

DRUGS (1)
  1. ABATACEPT [Suspect]
     Active Substance: ABATACEPT
     Indication: RHEUMATOID ARTHRITIS
     Dosage: 500 MG, Q4WK
     Route: 042

REACTIONS (1)
  - Orthopaedic procedure [Not Recovered/Not Resolved]

NARRATIVE: CASE EVENT DATE: 20150601
